FAERS Safety Report 19514171 (Version 2)
Quarter: 2021Q3

REPORT INFORMATION
  Report Type: Spontaneous
  Country: BE (occurrence: BE)
  Receive Date: 20210710
  Receipt Date: 20210719
  Transmission Date: 20211014
  Serious: Yes (Other)
  Sender: FDA-Public Use
  Company Number: BE-LUPIN PHARMACEUTICALS INC.-2021-11243

PATIENT
  Age: 12 Year
  Sex: Male
  Weight: 56 kg

DRUGS (5)
  1. LAMOTRIGINE. [Suspect]
     Active Substance: LAMOTRIGINE
     Dosage: 100 MILLIGRAM, BID (EVERY WEEK INCREASE WITH 2X25MG/D UNTIL 2100MG/D)
     Route: 048
     Dates: start: 2018
  2. TEGRETOL [Suspect]
     Active Substance: CARBAMAZEPINE
     Indication: PARTIAL SEIZURES
     Dosage: UNK
     Route: 065
  3. LAMOTRIGINE. [Suspect]
     Active Substance: LAMOTRIGINE
     Dosage: 25 MILLIGRAM, BID
     Route: 048
     Dates: start: 20180926
  4. LAMOTRIGINE. [Suspect]
     Active Substance: LAMOTRIGINE
     Indication: PARTIAL SEIZURES
     Dosage: 50 MILLIGRAM, BID (EVERY WEEK INCREASE WITH 2X25MG/D UNTIL 2X100MG/D)
     Route: 048
     Dates: start: 2018
  5. LAMOTRIGINE. [Suspect]
     Active Substance: LAMOTRIGINE
     Dosage: 75 MILLIGRAM, BID ( (EVERY WEEK INCREASE WITH 2X25MG/D UNTIL 2X100MG/D)
     Route: 048
     Dates: start: 2018

REACTIONS (6)
  - Dyskinesia [Recovered/Resolved]
  - Epilepsy [Recovered/Resolved]
  - Drug resistance [Unknown]
  - Change in seizure presentation [Recovered/Resolved]
  - Petit mal epilepsy [Recovered/Resolved]
  - Headache [Recovered/Resolved]

NARRATIVE: CASE EVENT DATE: 20180926
